FAERS Safety Report 4552989-8 (Version None)
Quarter: 2005Q1

REPORT INFORMATION
  Report Type: 
  Country: None (occurrence: None)
  Receive Date: 20050113
  Receipt Date: 20050105
  Transmission Date: 20050727
  Serious: Yes (Hospitalization, Other)
  Sender: FDA-Public Use
  Company Number: 2005-01-0242

PATIENT
  Age: 6 Year
  Sex: Male

DRUGS (2)
  1. RINDERON (BETAMETHASONE SODIUM PHOSPHATE) INJECTABLE SOLUTION ^LIKE CE [Suspect]
     Indication: ASTHMA
     Dosage: INTRAVENOUS
     Route: 042
  2. AMINOPHYLLIN INJ [Concomitant]

REACTIONS (4)
  - DRUG INEFFECTIVE [None]
  - HYPERSENSITIVITY [None]
  - STRIDOR [None]
  - URTICARIA [None]
